FAERS Safety Report 5179032-4 (Version None)
Quarter: 2006Q4

REPORT INFORMATION
  Report Type: 
  Country: None (occurrence: None)
  Receive Date: 20061208
  Receipt Date: 20061205
  Transmission Date: 20070319
  Serious: Yes (Hospitalization)
  Sender: FDA-Public Use
  Company Number: LTI2006A00294

PATIENT
  Age: 79 Year
  Sex: Male

DRUGS (7)
  1. LANSOPRAZOLE [Suspect]
     Dosage: 30 MG (30 MG, 1 IN 1 D)
     Route: 048
  2. PREVISCAN (FLUINDIONE) (TABLETS) [Suspect]
     Indication: ATRIAL FIBRILLATION
     Dosage: 15 MG (15 MG, 1 IN 1 D)
     Route: 048
  3. PROZAC [Suspect]
     Dosage: 20 MG (20 MG, 1 IN 1 D)
     Route: 048
  4. KETEK [Suspect]
     Indication: BRONCHITIS
     Route: 048
  5. SOLU MEDROL (METHYLPREDNISOLONE SODIUM SUCCINATE) (TABLETS) [Concomitant]
  6. PULMICORT (BUDESONIDE) (POULTICE OR PATCH) [Concomitant]
  7. BRONCHODUAL (DUOVENT) (POWDER) [Concomitant]

REACTIONS (5)
  - DRUG INTERACTION [None]
  - HAEMOPTYSIS [None]
  - INTERNATIONAL NORMALISED RATIO INCREASED [None]
  - OVERDOSE [None]
  - PROTHROMBIN LEVEL DECREASED [None]
